FAERS Safety Report 15598671 (Version 1)
Quarter: 2018Q4

REPORT INFORMATION
  Report Type: Spontaneous
  Country: GB (occurrence: GB)
  Receive Date: 20181108
  Receipt Date: 20181108
  Transmission Date: 20190205
  Serious: Yes (Life-Threatening)
  Sender: FDA-Public Use
  Company Number: PHHY2018GB148488

PATIENT
  Age: 6 Year
  Sex: Male

DRUGS (2)
  1. CARBAMAZEPINE. [Suspect]
     Active Substance: CARBAMAZEPINE
     Dosage: 7.5 UG/L
     Route: 048
  2. CARBAMAZEPINE. [Suspect]
     Active Substance: CARBAMAZEPINE
     Indication: SEIZURE
     Dosage: 12.5 ML, UNK
     Route: 048

REACTIONS (6)
  - Neutropenia [Unknown]
  - Platelet count decreased [Not Recovered/Not Resolved]
  - Contusion [Unknown]
  - Rash [Not Recovered/Not Resolved]
  - Haemoglobin decreased [Unknown]
  - Gingival bleeding [Unknown]
